FAERS Safety Report 9661302 (Version 2)
Quarter: 2015Q2

REPORT INFORMATION
  Report Type: Spontaneous
  Country: IT (occurrence: IT)
  Receive Date: 20131031
  Receipt Date: 20150520
  Transmission Date: 20150821
  Serious: Yes (Death, Hospitalization, Other)
  Sender: FDA-Public Use
  Company Number: PHHY2013IT119390

PATIENT
  Sex: Male
  Weight: 75 kg

DRUGS (2)
  1. PROPOFOL. [Suspect]
     Active Substance: PROPOFOL
     Indication: PRODUCT USED FOR UNKNOWN INDICATION
     Route: 065
  2. TRAMADOL [Suspect]
     Active Substance: TRAMADOL
     Indication: PRODUCT USED FOR UNKNOWN INDICATION
     Route: 065

REACTIONS (14)
  - Circulatory collapse [Fatal]
  - Toxicity to various agents [Unknown]
  - Heart rate increased [Unknown]
  - Cardiomyopathy [Unknown]
  - Pulmonary thrombosis [Unknown]
  - Hepatic congestion [Unknown]
  - Cyanosis [Fatal]
  - Atrial fibrillation [Unknown]
  - Acidosis [Unknown]
  - Acute respiratory failure [Fatal]
  - Dyspnoea [Fatal]
  - Blood pressure decreased [Unknown]
  - Pulmonary oedema [Unknown]
  - Wound [Unknown]
